FAERS Safety Report 24465153 (Version 2)
Quarter: 2025Q3

REPORT INFORMATION
  Report Type: Report from Study
  Country: US (occurrence: US)
  Receive Date: 20241018
  Receipt Date: 20250716
  Transmission Date: 20251020
  Serious: Yes (Hospitalization)
  Sender: ROCHE
  Company Number: US-ROCHE-3525503

PATIENT
  Age: 68 Year
  Sex: Female

DRUGS (29)
  1. XOLAIR [Suspect]
     Active Substance: OMALIZUMAB
     Indication: Asthma
     Dosage: INJECT 225MG SUBCUTANEOUSLY EVERY 14 DAY(S)
     Route: 058
  2. XOLAIR [Suspect]
     Active Substance: OMALIZUMAB
     Indication: Asthma
     Dosage: INJECT 225MG SUBCUTANEOUSLY EVERY 14 DAY(S)
     Route: 058
  3. XOLAIR [Suspect]
     Active Substance: OMALIZUMAB
     Indication: Asthma
  4. ALBUTEROL [Concomitant]
     Active Substance: ALBUTEROL
  5. PROVENTIL [Concomitant]
     Active Substance: ALBUTEROL
  6. ASPIRIN [Concomitant]
     Active Substance: ASPIRIN
  7. BOSULIF [Concomitant]
     Active Substance: BOSUTINIB MONOHYDRATE
  8. BREO ELLIPTA [Concomitant]
     Active Substance: FLUTICASONE FUROATE\VILANTEROL TRIFENATATE
  9. BUSPAR [Concomitant]
     Active Substance: BUSPIRONE HYDROCHLORIDE
  10. CHOLECALCIFEROL [Concomitant]
     Active Substance: CHOLECALCIFEROL
  11. MYCELEX [Concomitant]
     Active Substance: CLOTRIMAZOLE
  12. COLCHICINE [Concomitant]
     Active Substance: COLCHICINE
  13. MUCINEX DM [Concomitant]
     Active Substance: DEXTROMETHORPHAN HYDROBROMIDE\GUAIFENESIN
  14. PEPCID [Concomitant]
     Active Substance: FAMOTIDINE
  15. FLONASE [Concomitant]
     Active Substance: FLUTICASONE PROPIONATE
  16. LASIX [Concomitant]
     Active Substance: FUROSEMIDE
  17. ATROVENT HFA [Concomitant]
     Active Substance: IPRATROPIUM BROMIDE
  18. CLARITIN [Concomitant]
     Active Substance: LORATADINE
  19. COZAAR [Concomitant]
     Active Substance: LOSARTAN POTASSIUM
  20. MAGNESIUM OXIDE [Concomitant]
     Active Substance: MAGNESIUM OXIDE
  21. SINGULAIR [Concomitant]
     Active Substance: MONTELUKAST SODIUM
  22. ZOFRAN [Concomitant]
     Active Substance: ONDANSETRON HYDROCHLORIDE
  23. KLOR-CON [Concomitant]
     Active Substance: POTASSIUM CHLORIDE
  24. DELTASONE [Concomitant]
     Active Substance: PREDNISONE
  25. ALDACTONE [Concomitant]
     Active Substance: SPIRONOLACTONE
  26. SPIRIVA RESPIMAT [Concomitant]
     Active Substance: TIOTROPIUM BROMIDE
  27. ULTRAM [Concomitant]
     Active Substance: TRAMADOL HYDROCHLORIDE
  28. DESYREL [Concomitant]
     Active Substance: TRAZODONE HYDROCHLORIDE
  29. TUSSIONEX PENNKINETIC [Concomitant]
     Active Substance: CHLORPHENIRAMINE\HYDROCODONE

REACTIONS (4)
  - Influenza [Unknown]
  - Aphonia [Not Recovered/Not Resolved]
  - Illness [Unknown]
  - Pyrexia [Unknown]

NARRATIVE: CASE EVENT DATE: 20240304
